FAERS Safety Report 23099786 (Version 3)
Quarter: 2025Q1

REPORT INFORMATION
  Report Type: Report from Study
  Country: US (occurrence: US)
  Receive Date: 20231024
  Receipt Date: 20250331
  Transmission Date: 20250409
  Serious: No
  Sender: TAKEDA
  Company Number: US-TAKEDA-2023TUS072402

PATIENT
  Sex: Female

DRUGS (1)
  1. VEDOLIZUMAB [Suspect]
     Active Substance: VEDOLIZUMAB
     Indication: Product used for unknown indication

REACTIONS (6)
  - Illness [Unknown]
  - Lung disorder [Unknown]
  - Hernia [Unknown]
  - Malaise [Unknown]
  - Mental fatigue [Unknown]
  - Inappropriate schedule of product administration [Unknown]
